FAERS Safety Report 9233697 (Version 2)
Quarter: 2013Q2

REPORT INFORMATION
  Report Type: Spontaneous
  Country: DE (occurrence: DE)
  Receive Date: 20130416
  Receipt Date: 20130613
  Transmission Date: 20140414
  Serious: Yes (Hospitalization)
  Sender: FDA-Public Use
  Company Number: DE-NOVOPROD-375143

PATIENT
  Age: 64 Year
  Sex: Female
  Weight: 78 kg

DRUGS (5)
  1. VICTOZA [Suspect]
     Indication: TYPE 2 DIABETES MELLITUS
     Dosage: 0.6 (UNITS UNSPECIFIED), QD
     Route: 058
     Dates: start: 20101001, end: 20101011
  2. VICTOZA [Suspect]
     Dosage: 1.6 (UNITS UNSPECIFIED), QD
     Route: 058
     Dates: start: 20101012, end: 20101206
  3. VICTOZA [Suspect]
     Dosage: 1.8 (UNITS UNSPECIFIED), QD
     Route: 058
     Dates: start: 20101207, end: 20130308
  4. METFORMIN [Concomitant]
     Indication: TYPE 2 DIABETES MELLITUS
     Dosage: 850 , TID
     Route: 048
  5. GLIMEPIRID [Concomitant]
     Indication: TYPE 2 DIABETES MELLITUS
     Dosage: 3 MG, QD

REACTIONS (1)
  - Pancreatic carcinoma [Unknown]
